FAERS Safety Report 15105128 (Version 2)
Quarter: 2020Q2

REPORT INFORMATION
  Report Type: Spontaneous
  Country: DE (occurrence: DE)
  Receive Date: 20180703
  Receipt Date: 20200506
  Transmission Date: 20200713
  Serious: Yes (Disabling, Other)
  Sender: FDA-Public Use
  Company Number: DE-BRISTOL-MYERS SQUIBB COMPANY-BMS-2018-060112

PATIENT
  Age: 9 Decade
  Sex: Female

DRUGS (1)
  1. ELIQUIS [Suspect]
     Active Substance: APIXABAN
     Indication: CEREBROVASCULAR ACCIDENT PROPHYLAXIS
     Dosage: 5 MG, BID
     Route: 065

REACTIONS (8)
  - Fall [Unknown]
  - Epilepsy [Unknown]
  - Intentional product use issue [Unknown]
  - Speech disorder [Unknown]
  - Cerebrovascular accident [Unknown]
  - Musculoskeletal discomfort [Unknown]
  - Procedural haemorrhage [Unknown]
  - Cardiac valve disease [Unknown]
